FAERS Safety Report 18581807 (Version 2)
Quarter: 2020Q4

REPORT INFORMATION
  Report Type: Spontaneous
  Country: US (occurrence: US)
  Receive Date: 20201204
  Receipt Date: 20201210
  Transmission Date: 20210114
  Serious: No
  Sender: FDA-Public Use
  Company Number: US-PFIZER INC-2020479071

PATIENT
  Sex: Female

DRUGS (1)
  1. GABAPENTIN. [Suspect]
     Active Substance: GABAPENTIN
     Dosage: 300 MG (SHE TAKES 4 OR SOMETIMES 6 TO 8 PER DAY)

REACTIONS (4)
  - Constipation [Unknown]
  - Intentional product misuse [Unknown]
  - Faeces discoloured [Unknown]
  - Cough [Unknown]
